FAERS Safety Report 7003679-3 (Version None)
Quarter: 2010Q3

REPORT INFORMATION
  Report Type: 
  Country: None (occurrence: None)
  Receive Date: 20100920
  Receipt Date: 20090305
  Transmission Date: 20110219
  Serious: Yes (Other)
  Sender: FDA-Public Use
  Company Number: US-WYE-H08498709

PATIENT
  Age: 42 Year
  Sex: Female
  Weight: 68.1 kg

DRUGS (2)
  1. PROTONIX [Suspect]
     Indication: GASTROOESOPHAGEAL REFLUX DISEASE
     Route: 048
     Dates: start: 20090302, end: 20090305
  2. LORAZEPAM [Concomitant]
     Dosage: UNKNOWN
     Route: 048

REACTIONS (1)
  - JAUNDICE [None]
